FAERS Safety Report 8119189-6 (Version None)
Quarter: 2012Q1

REPORT INFORMATION
  Report Type: 
  Country: None (occurrence: None)
  Receive Date: 20120207
  Receipt Date: 20120123
  Transmission Date: 20120608
  Serious: Yes (Other)
  Sender: FDA-Public Use
  Company Number: US-JUTA GMBH-2012-01475

PATIENT
  Age: 88 Year
  Sex: Female

DRUGS (2)
  1. PRAVASTATIN SODIUM [Suspect]
     Indication: HYPERLIPIDAEMIA
     Dosage: UNK
     Route: 065
  2. ANASTROZOLE [Suspect]
     Indication: BREAST CANCER
     Dosage: UNK
     Route: 065

REACTIONS (3)
  - LIVER FUNCTION TEST ABNORMAL [None]
  - CHOLESTASIS [None]
  - LIVER DISORDER [None]
